FAERS Safety Report 5253944-5 (Version None)
Quarter: 2007Q1

REPORT INFORMATION
  Report Type: 
  Country: None (occurrence: None)
  Receive Date: 20070228
  Receipt Date: 20070228
  Transmission Date: 20070707
  Serious: Yes (Hospitalization)
  Sender: FDA-Public Use
  Company Number: None

PATIENT
  Age: 37 Year
  Sex: Female
  Weight: 72.5755 kg

DRUGS (1)
  1. SERTRALINE HCL [Suspect]
     Indication: ANXIETY DISORDER
     Dosage: 150MG  1/DAY  ORAL
     Route: 048
     Dates: start: 20061116, end: 20070101

REACTIONS (4)
  - ASPIRATION [None]
  - CHOKING [None]
  - PHARMACEUTICAL PRODUCT COMPLAINT [None]
  - TOTAL LUNG CAPACITY DECREASED [None]
